FAERS Safety Report 15241379 (Version 1)
Quarter: 2018Q4

REPORT INFORMATION
  Report Type: Spontaneous
  Country: NL (occurrence: NL)
  Receive Date: 20180805
  Receipt Date: 20180805
  Transmission Date: 20190204
  Serious: Yes (Hospitalization, Other)
  Sender: FDA-Public Use
  Company Number: NL-CONCORDIA PHARMACEUTICALS INC.-E2B_00015298

PATIENT
  Age: 30 Year
  Sex: Female

DRUGS (8)
  1. PROGRAFT CAPSULE 1MG [Suspect]
     Active Substance: TACROLIMUS
     Indication: IMMUNOSUPPRESSION
     Dosage: CONCOMITANT DRUG: NOT REPORTED
     Dates: start: 19990212, end: 200304
  2. VALACICLOVIR [Concomitant]
     Active Substance: VALACYCLOVIR HYDROCHLORIDE
     Indication: HERPES ZOSTER INFECTION NEUROLOGICAL
  3. IMURAN [Suspect]
     Active Substance: AZATHIOPRINE
     Indication: IMMUNOSUPPRESSION
     Dosage: CONCOMITANT DRUG: NOT REPORTED
     Dates: start: 2003
  4. LAMIVUDINE. [Concomitant]
     Active Substance: LAMIVUDINE
     Indication: PROPHYLAXIS
     Dosage: 100 MG, UNK
  5. SANDIMMUNE [Suspect]
     Active Substance: CYCLOSPORINE
     Indication: IMMUNOSUPPRESSION
     Dosage: CONCOMITANT DRUG: NOT REPORTED
     Dates: start: 2003
  6. HEPATITIS B IMMUNE GLOBULIN [Concomitant]
     Active Substance: HUMAN HEPATITIS B VIRUS IMMUNE GLOBULIN
     Dosage: DOSAGE FORM
     Route: 042
     Dates: start: 19990212
  7. PREDNISOLONE 5MG [Suspect]
     Active Substance: PREDNISOLONE
     Indication: IMMUNOSUPPRESSION
     Dosage: CONCOMITANT DRUG: NOT REPORTED
     Dates: start: 19990212
  8. MESALAZINE [Concomitant]
     Active Substance: MESALAMINE
     Indication: COLITIS

REACTIONS (11)
  - Liver function test abnormal [Recovering/Resolving]
  - Ascites [Recovering/Resolving]
  - Colitis ulcerative [Recovering/Resolving]
  - Herpes zoster [Recovering/Resolving]
  - Hepatic cirrhosis [Recovering/Resolving]
  - Jaundice [Recovering/Resolving]
  - Hepatic fibrosis [Recovering/Resolving]
  - Hepatitis E [Recovering/Resolving]
  - Oesophageal varices haemorrhage [Recovering/Resolving]
  - Liver transplant [Recovering/Resolving]
  - Hepatic cirrhosis [Unknown]

NARRATIVE: CASE EVENT DATE: 19990412
